FAERS Safety Report 21335900 (Version 1)
Quarter: 2022Q3

REPORT INFORMATION
  Report Type: Spontaneous
  Country: US (occurrence: US)
  Receive Date: 20220915
  Receipt Date: 20220915
  Transmission Date: 20221026
  Serious: No
  Sender: FDA-Public Use
  Company Number: US-UNITED THERAPEUTICS-UNT-2022-020976

PATIENT
  Sex: Female

DRUGS (2)
  1. REMODULIN [Suspect]
     Active Substance: TREPROSTINIL
     Indication: Pulmonary arterial hypertension
     Dosage: UNK, CONTINUING
     Route: 058
     Dates: start: 20210331
  2. REMODULIN [Suspect]
     Active Substance: TREPROSTINIL
     Dosage: 0.0351 ?G/KG, CONTINUING
     Route: 058

REACTIONS (8)
  - Infusion site pain [Recovering/Resolving]
  - Needle issue [Unknown]
  - Feeling abnormal [Unknown]
  - Hypersomnia [Unknown]
  - Dizziness [Unknown]
  - Vertigo [Unknown]
  - Amnesia [Unknown]
  - Dyspnoea [Unknown]

NARRATIVE: CASE EVENT DATE: 20220101
